FAERS Safety Report 17561680 (Version 7)
Quarter: 2020Q2

REPORT INFORMATION
  Report Type: Report from Study
  Country: US (occurrence: US)
  Receive Date: 20200319
  Receipt Date: 20200605
  Transmission Date: 20200713
  Serious: Yes (Other)
  Sender: FDA-Public Use
  Company Number: US-PFIZER INC-2020086340

PATIENT
  Age: 57 Year
  Sex: Female

DRUGS (3)
  1. IBRANCE [Suspect]
     Active Substance: PALBOCICLIB
     Dosage: 100 MG, CYCLIC (DAILY FOR 21 DAYS OF 28 DAY CYCLE)
     Route: 048
     Dates: start: 20200403, end: 20200416
  2. IBRANCE [Suspect]
     Active Substance: PALBOCICLIB
     Dosage: 75 MG, CYCLIC (DAILY FOR 21 DAYS OF 28 DAY, DAILY FOR 14 DAYS OF 21 PER MD VERBAL INSTRUCTION)
     Route: 048
     Dates: start: 20200430, end: 20200521
  3. IBRANCE [Suspect]
     Active Substance: PALBOCICLIB
     Indication: BREAST CANCER FEMALE
     Dosage: 125 MG, CYCLIC (DAILY FOR 21 DAYS OF 28 DAY CYCLE)
     Route: 048
     Dates: start: 20200224, end: 20200322

REACTIONS (17)
  - Dry skin [Unknown]
  - Nail disorder [Unknown]
  - Taste disorder [Unknown]
  - Oropharyngeal blistering [Unknown]
  - Eye pruritus [Unknown]
  - Cough [Unknown]
  - Nausea [Unknown]
  - Pyrexia [Unknown]
  - Rash pruritic [Recovering/Resolving]
  - Urticaria [Recovering/Resolving]
  - Tongue disorder [Unknown]
  - Night sweats [Not Recovered/Not Resolved]
  - Hypersensitivity [Unknown]
  - Gingival bleeding [Unknown]
  - Mucosal inflammation [Unknown]
  - Paraesthesia [Unknown]
  - Neoplasm progression [Unknown]

NARRATIVE: CASE EVENT DATE: 2020
